FAERS Safety Report 10740285 (Version 2)
Quarter: 2015Q2

REPORT INFORMATION
  Report Type: Spontaneous
  Country: CA (occurrence: CA)
  Receive Date: 20150127
  Receipt Date: 20150526
  Transmission Date: 20150821
  Serious: Yes (Other)
  Sender: FDA-Public Use
  Company Number: CA-ROCHE-1526040

PATIENT
  Age: 44 Year
  Sex: Female

DRUGS (1)
  1. XOLAIR [Suspect]
     Active Substance: OMALIZUMAB
     Indication: ASTHMA
     Route: 058
     Dates: start: 20070918

REACTIONS (5)
  - Dyspnoea [Unknown]
  - Hypokinesia [Unknown]
  - Cough [Unknown]
  - Cholelithiasis [Unknown]
  - Bronchitis [Unknown]

NARRATIVE: CASE EVENT DATE: 20130607
